FAERS Safety Report 25319449 (Version 3)
Quarter: 2025Q2

REPORT INFORMATION
  Report Type: Spontaneous
  Country: US (occurrence: US)
  Receive Date: 20250515
  Receipt Date: 20250603
  Transmission Date: 20250717
  Serious: No
  Sender: VERTEX
  Company Number: US-VERTEX PHARMACEUTICALS-2025-007410

PATIENT
  Age: 65 Year

DRUGS (3)
  1. JOURNAVX [Suspect]
     Active Substance: SUZETRIGINE
     Indication: Complex regional pain syndrome
     Route: 048
     Dates: start: 2025
  2. MORPHINE [Concomitant]
     Active Substance: MORPHINE
     Indication: Pain
     Dosage: 45 MG, QD
  3. HYDROMORPHONE [Concomitant]
     Active Substance: HYDROMORPHONE
     Indication: Pain
     Dosage: 30 MG, QD

REACTIONS (9)
  - Feeling drunk [Unknown]
  - Dizziness [Unknown]
  - Abdominal discomfort [Unknown]
  - Vision blurred [Unknown]
  - Confusional state [Unknown]
  - Impaired work ability [Unknown]
  - Anger [Unknown]
  - Frustration tolerance decreased [Unknown]
  - Off label use [Unknown]

NARRATIVE: CASE EVENT DATE: 20250101
